FAERS Safety Report 21475873 (Version 1)
Quarter: 2022Q4

REPORT INFORMATION
  Report Type: Report from Study
  Country: CA (occurrence: CA)
  Receive Date: 20221019
  Receipt Date: 20221019
  Transmission Date: 20230113
  Serious: Yes (Other)
  Sender: FDA-Public Use
  Company Number: CA-BAUSCH-BL-2018-036022

PATIENT
  Age: 61 Year
  Sex: Female

DRUGS (4)
  1. SILIQ [Suspect]
     Active Substance: BRODALUMAB
     Indication: Psoriasis
     Dosage: 210 MG/ 1.5 ML
     Route: 058
     Dates: start: 20181219, end: 201901
  2. SILIQ [Suspect]
     Active Substance: BRODALUMAB
     Route: 058
     Dates: start: 20190116, end: 202003
  3. SILIQ [Suspect]
     Active Substance: BRODALUMAB
     Route: 058
     Dates: start: 2020
  4. SILIQ [Suspect]
     Active Substance: BRODALUMAB
     Dosage: 210MG/1.5ML, Q2WEEKS
     Route: 058
     Dates: start: 2022, end: 202210

REACTIONS (6)
  - Cataract operation [Not Recovered/Not Resolved]
  - Psoriasis [Not Recovered/Not Resolved]
  - Dizziness [Recovered/Resolved]
  - Headache [Recovered/Resolved]
  - Therapeutic product effect decreased [Unknown]
  - Therapy interrupted [Unknown]

NARRATIVE: CASE EVENT DATE: 20181201
